FAERS Safety Report 25982009 (Version 2)
Quarter: 2025Q4

REPORT INFORMATION
  Report Type: Report from Study
  Country: EU (occurrence: EU)
  Receive Date: 20251031
  Receipt Date: 20251115
  Transmission Date: 20260118
  Serious: Yes (Death, Other)
  Sender: NEXUS PHARMACEUTICALS
  Company Number: EU-Nexus Pharma-000507

PATIENT

DRUGS (1)
  1. CYCLOPHOSPHAMIDE [Suspect]
     Active Substance: CYCLOPHOSPHAMIDE
     Indication: Prophylaxis against graft versus host disease

REACTIONS (2)
  - Fungal infection [Fatal]
  - Respiratory failure [Unknown]
